FAERS Safety Report 18311347 (Version 1)
Quarter: 2020Q3

REPORT INFORMATION
  Report Type: Spontaneous
  Country: US (occurrence: US)
  Receive Date: 20200924
  Receipt Date: 20200924
  Transmission Date: 20201103
  Serious: No
  Sender: FDA-Public Use
  Company Number: None

PATIENT
  Age: 60 Year
  Sex: Male

DRUGS (2)
  1. RIVAROXABAN (RIVAROXABAN 20MG TAB) [Suspect]
     Active Substance: RIVAROXABAN
     Route: 048
  2. RIVAROXABAN (RIVAROXABAN 20MG TAB) [Suspect]
     Active Substance: RIVAROXABAN

REACTIONS (7)
  - Haemorrhage [None]
  - Asthenia [None]
  - Diverticulum [None]
  - Anaemia [None]
  - Fatigue [None]
  - Acute myocardial infarction [None]
  - Lethargy [None]

NARRATIVE: CASE EVENT DATE: 20190123
